FAERS Safety Report 9695681 (Version 1)
Quarter: 2013Q4

REPORT INFORMATION
  Report Type: Spontaneous
  Country: CA (occurrence: CA)
  Receive Date: 20131119
  Receipt Date: 20131119
  Transmission Date: 20140711
  Serious: Yes (Other)
  Sender: FDA-Public Use
  Company Number: CA-GE HEALTHCARE MEDICAL DIAGNOSTICS-VISP-PR-1311S-0900

PATIENT
  Age: 60 Year
  Sex: Female

DRUGS (2)
  1. VISIPAQUE [Suspect]
     Indication: TRANSIENT ISCHAEMIC ATTACK
     Route: 042
     Dates: start: 20131024, end: 20131024
  2. VISIPAQUE [Suspect]
     Indication: DIAGNOSTIC PROCEDURE

REACTIONS (3)
  - Oropharyngeal discomfort [Recovered/Resolved]
  - Nasal discomfort [Recovered/Resolved]
  - Cough [Recovered/Resolved]
